FAERS Safety Report 6262030-7 (Version None)
Quarter: 2009Q3

REPORT INFORMATION
  Report Type: 
  Country: None (occurrence: None)
  Receive Date: 20090709
  Receipt Date: 20090629
  Transmission Date: 20100115
  Serious: Yes (Other)
  Sender: FDA-Public Use
  Company Number: CA-ABBOTT-09P-028-0583072-00

PATIENT
  Sex: Female

DRUGS (7)
  1. HUMIRA [Suspect]
     Indication: CROHN'S DISEASE
     Dosage: 160 MG
     Route: 058
     Dates: start: 20090625
  2. HUMIRA [Suspect]
     Route: 058
     Dates: start: 20090625
  3. DILAUDID [Concomitant]
     Indication: DRUG USE FOR UNKNOWN INDICATION
  4. EFFEXOR [Concomitant]
     Indication: DRUG USE FOR UNKNOWN INDICATION
  5. ENALAPRIL MALEATE [Concomitant]
     Indication: DRUG USE FOR UNKNOWN INDICATION
  6. LIFE BRAND ALLERGY FORMULA [Concomitant]
     Indication: DRUG USE FOR UNKNOWN INDICATION
  7. GRAVOL TAB [Concomitant]
     Indication: DRUG USE FOR UNKNOWN INDICATION

REACTIONS (6)
  - DIZZINESS [None]
  - FEELING ABNORMAL [None]
  - FLANK PAIN [None]
  - HEADACHE [None]
  - SUICIDAL IDEATION [None]
  - URINARY TRACT INFECTION [None]
